FAERS Safety Report 25237043 (Version 1)
Quarter: 2025Q2

REPORT INFORMATION
  Report Type: Spontaneous
  Country: US (occurrence: US)
  Receive Date: 20250424
  Receipt Date: 20250424
  Transmission Date: 20250717
  Serious: Yes (Hospitalization)
  Sender: ENDO
  Company Number: US-ENDO USA, INC.-2025-001080

PATIENT
  Age: 23 Year
  Sex: Male

DRUGS (1)
  1. KETALAR [Suspect]
     Active Substance: KETAMINE HYDROCHLORIDE
     Indication: Substance use
     Dosage: UNK UNKNOWN, BID (SNORTING)

REACTIONS (5)
  - Acute kidney injury [Unknown]
  - Biliary tract disorder [Recovering/Resolving]
  - Urinary tract obstruction [Unknown]
  - Cachexia [Unknown]
  - Drug abuse [Recovered/Resolved]
